FAERS Safety Report 9137362 (Version 2)
Quarter: 2013Q2

REPORT INFORMATION
  Report Type: Spontaneous
  Country: DE (occurrence: DE)
  Receive Date: 20130304
  Receipt Date: 20130402
  Transmission Date: 20140414
  Serious: Yes (Death, Life-Threatening, Hospitalization)
  Sender: FDA-Public Use
  Company Number: DE-ELI_LILLY_AND_COMPANY-DE201302003490

PATIENT
  Sex: Female

DRUGS (3)
  1. HUMALOG LISPRO [Suspect]
     Dosage: UNK, UNKNOWN
     Route: 058
     Dates: start: 201011
  2. LANTUS [Concomitant]
     Route: 058
  3. ACTRAPID                           /00646001/ [Concomitant]
     Dosage: UNK
     Dates: start: 201205

REACTIONS (3)
  - Plasma cell myeloma [Fatal]
  - Blood glucose abnormal [Unknown]
  - Drug dose omission [Unknown]
